FAERS Safety Report 8757327 (Version 8)
Quarter: 2013Q4

REPORT INFORMATION
  Report Type: Spontaneous
  Country: US (occurrence: US)
  Receive Date: 20120828
  Receipt Date: 20131126
  Transmission Date: 20140711
  Serious: Yes (Disabling, Other)
  Sender: FDA-Public Use
  Company Number: US-009507513-1208USA007492

PATIENT
  Sex: Female

DRUGS (3)
  1. FOSAMAX [Suspect]
     Indication: OSTEOPOROSIS
     Dosage: 10 MG, QD
     Route: 048
     Dates: start: 1995, end: 2007
  2. FOSAMAX [Suspect]
     Dosage: 70 MG, QW
     Route: 048
     Dates: start: 20010517, end: 20011206
  3. ACTONEL [Suspect]
     Dosage: 5 MG, UNK
     Route: 048
     Dates: start: 20020320, end: 200709

REACTIONS (40)
  - Intramedullary rod insertion [Unknown]
  - Femur fracture [Recovering/Resolving]
  - Femur fracture [Unknown]
  - Tooth extraction [Unknown]
  - Upper limb fracture [Unknown]
  - Fall [Unknown]
  - Low turnover osteopathy [Recovering/Resolving]
  - Vitamin D decreased [Recovered/Resolved]
  - Overdose [Unknown]
  - Intertrigo candida [Unknown]
  - Peripheral vascular disorder [Unknown]
  - Sleep apnoea syndrome [Unknown]
  - Stasis dermatitis [Unknown]
  - Hypercholesterolaemia [Unknown]
  - Herpes simplex [Unknown]
  - Hypothyroidism [Unknown]
  - Hyperlipidaemia [Unknown]
  - Hyperglycaemia [Unknown]
  - Cough [Unknown]
  - Urinary incontinence [Unknown]
  - Hiatus hernia [Unknown]
  - Osteoarthritis [Unknown]
  - Major depression [Unknown]
  - Diverticulum [Unknown]
  - Haemorrhoids [Unknown]
  - Supraventricular extrasystoles [Unknown]
  - Venous insufficiency [Unknown]
  - Presyncope [Unknown]
  - Onychomycosis [Unknown]
  - Urinary tract infection [Unknown]
  - Rosacea [Unknown]
  - Varicose vein [Unknown]
  - Dermatitis [Unknown]
  - Wrist fracture [Unknown]
  - Foot fracture [Unknown]
  - Foot fracture [Unknown]
  - Bone pain [Unknown]
  - Constipation [Unknown]
  - Vertigo [Recovering/Resolving]
  - Gastrooesophageal reflux disease [Unknown]
